FAERS Safety Report 11663925 (Version 3)
Quarter: 2016Q3

REPORT INFORMATION
  Report Type: Report from Study
  Country: US (occurrence: US)
  Receive Date: 20151027
  Receipt Date: 20160919
  Transmission Date: 20161109
  Serious: Yes (Death)
  Sender: FDA-Public Use
  Company Number: PHEH2014US023665

PATIENT
  Age: 75 Year
  Sex: Male

DRUGS (3)
  1. EXJADE [Suspect]
     Active Substance: DEFERASIROX
     Indication: CHRONIC OBSTRUCTIVE PULMONARY DISEASE
     Dosage: 1500 MG, QD
     Route: 048
     Dates: start: 201409
  2. EXJADE [Suspect]
     Active Substance: DEFERASIROX
     Dosage: 2000 MG, QD (4X500 MG, DAY)
     Route: 048
  3. EXJADE [Suspect]
     Active Substance: DEFERASIROX
     Dosage: 3000 MG, QD (6X500 MG)
     Route: 048

REACTIONS (3)
  - Dysarthria [Unknown]
  - Product use issue [Unknown]
  - Death [Fatal]

NARRATIVE: CASE EVENT DATE: 20160912
